FAERS Safety Report 7089672-3 (Version None)
Quarter: 2010Q4

REPORT INFORMATION
  Report Type: 
  Country: None (occurrence: None)
  Receive Date: 20101108
  Receipt Date: 20091117
  Transmission Date: 20110411
  Serious: No
  Sender: FDA-Public Use
  Company Number: US-ABBOTT-09P-163-0609506-00

PATIENT
  Sex: Male
  Weight: 78.996 kg

DRUGS (1)
  1. TRICOR [Suspect]
     Indication: BLOOD CHOLESTEROL INCREASED
     Dosage: UNKNOWN
     Dates: end: 20090401

REACTIONS (1)
  - ADDISON'S DISEASE [None]
